FAERS Safety Report 14063899 (Version 2)
Quarter: 2018Q1

REPORT INFORMATION
  Report Type: Spontaneous
  Country: AU (occurrence: AU)
  Receive Date: 20171009
  Receipt Date: 20180306
  Transmission Date: 20180508
  Serious: Yes (Death)
  Sender: FDA-Public Use
  Company Number: PHHY2017AU147472

PATIENT
  Sex: Female

DRUGS (16)
  1. POSACONAZOL [Suspect]
     Active Substance: POSACONAZOLE
     Dosage: 200 MG, TID
     Route: 065
     Dates: start: 20120221
  2. POSACONAZOL [Suspect]
     Active Substance: POSACONAZOLE
     Dosage: 200 MG, TID
     Route: 065
     Dates: start: 20120326
  3. POSACONAZOL [Suspect]
     Active Substance: POSACONAZOLE
     Dosage: 200 MG, TID
     Route: 065
     Dates: start: 20121019
  4. ETOPOSIDE. [Suspect]
     Active Substance: ETOPOSIDE
     Dosage: 9 MG/M2, QD (1 TO 7)
     Route: 042
     Dates: start: 20120326
  5. CYTARABINE. [Suspect]
     Active Substance: CYTARABINE
     Dosage: 2000 MG/M2, QD (DAY 1 TO 5)
     Route: 042
     Dates: start: 20121019
  6. POSACONAZOL [Suspect]
     Active Substance: POSACONAZOLE
     Indication: PRODUCT USED FOR UNKNOWN INDICATION
     Dosage: 200 MG, TID
     Route: 065
     Dates: start: 20120120
  7. ETOPOSIDE. [Suspect]
     Active Substance: ETOPOSIDE
     Indication: ACUTE MYELOID LEUKAEMIA
     Dosage: 75 MG/M2, QD (DAY 1 TO 7)
     Route: 042
     Dates: start: 20120221
  8. IDARUBICIN [Suspect]
     Active Substance: IDARUBICIN
     Indication: ACUTE MYELOID LEUKAEMIA
     Dosage: 12 MG/M2, QD (DAY 1 TO 3)
     Route: 042
     Dates: start: 20120120
  9. IDARUBICIN [Suspect]
     Active Substance: IDARUBICIN
     Dosage: 9 MG/M2, QD (DAY 1 TO 3)
     Route: 042
     Dates: start: 20120326
  10. CYTARABINE. [Suspect]
     Active Substance: CYTARABINE
     Dosage: 3000 MG/M2, BID (DAT 1 TO 7)
     Route: 042
     Dates: start: 20120326
  11. G-CSF [Suspect]
     Active Substance: GRANULOCYTE COLONY-STIMULATING FACTOR NOS
     Indication: ACUTE MYELOID LEUKAEMIA
     Dosage: 300 MG, QD (DAY 0 TO 6)
     Route: 058
     Dates: start: 20121019
  12. FLUDARABINE [Suspect]
     Active Substance: FLUDARABINE PHOSPHATE
     Indication: ACUTE MYELOID LEUKAEMIA
     Dosage: 30 MG/M2, QD (DAY 1 TO 5)
     Route: 042
     Dates: start: 20121019
  13. CYTARABINE. [Suspect]
     Active Substance: CYTARABINE
     Indication: ACUTE MYELOID LEUKAEMIA
     Dosage: 3000 MG/M2, BID (DAY 1,3,5,7)
     Route: 042
     Dates: start: 20120120
  14. AMSACRINE [Suspect]
     Active Substance: AMSACRINE
     Indication: ACUTE MYELOID LEUKAEMIA
     Dosage: 100 MG/M2, QD (DAY 1 TO 3)
     Route: 042
     Dates: start: 20121019
  15. IDARUBICIN [Suspect]
     Active Substance: IDARUBICIN
     Dosage: 9 MG/M2, QD (DAY 1 TO 3)
     Route: 042
     Dates: start: 20120221
  16. CYTARABINE. [Suspect]
     Active Substance: CYTARABINE
     Dosage: 3000 MG/M2, BID (DAY 1 TO 7)
     Route: 042
     Dates: start: 20120221

REACTIONS (2)
  - Death [Fatal]
  - Drug effect incomplete [Unknown]
